FAERS Safety Report 24896376 (Version 2)
Quarter: 2025Q2

REPORT INFORMATION
  Report Type: Spontaneous
  Country: US (occurrence: US)
  Receive Date: 20250128
  Receipt Date: 20250515
  Transmission Date: 20250717
  Serious: No
  Sender: ALEXION PHARMACEUTICALS
  Company Number: US-AstraZeneca-CH-00792317AP

PATIENT

DRUGS (1)
  1. TEZSPIRE [Suspect]
     Active Substance: TEZEPELUMAB-EKKO

REACTIONS (11)
  - Respiratory rate [Unknown]
  - Arthritis [Unknown]
  - Cough [Unknown]
  - Pain [Unknown]
  - Confusional state [Unknown]
  - Myalgia [Unknown]
  - Asthenia [Unknown]
  - Device issue [Unknown]
  - Needle issue [Unknown]
  - Taste disorder [Unknown]
  - Fatigue [Unknown]
